FAERS Safety Report 13464654 (Version 1)
Quarter: 2017Q2

REPORT INFORMATION
  Report Type: Spontaneous
  Country: US (occurrence: US)
  Receive Date: 20170420
  Receipt Date: 20170420
  Transmission Date: 20170830
  Serious: Yes (Other)
  Sender: FDA-Public Use
  Company Number: US-ROCHE-719221

PATIENT
  Age: 25 Year
  Sex: Female

DRUGS (2)
  1. ACCUTANE [Suspect]
     Active Substance: ISOTRETINOIN
     Route: 065
     Dates: start: 20001011, end: 200102
  2. ACCUTANE [Suspect]
     Active Substance: ISOTRETINOIN
     Indication: ACNE
     Route: 065

REACTIONS (8)
  - Inflammatory bowel disease [Unknown]
  - Proctitis ulcerative [Unknown]
  - Xerosis [Recovering/Resolving]
  - Lip dry [Unknown]
  - Headache [Recovered/Resolved]
  - Epistaxis [Unknown]
  - Anxiety [Unknown]
  - Myalgia [Unknown]

NARRATIVE: CASE EVENT DATE: 20001011
